FAERS Safety Report 24686956 (Version 2)
Quarter: 2024Q4

REPORT INFORMATION
  Report Type: Spontaneous
  Country: US (occurrence: US)
  Receive Date: 20241202
  Receipt Date: 20241209
  Transmission Date: 20250114
  Serious: No
  Sender: ROCHE
  Company Number: US-ROCHE-10000143846

PATIENT
  Age: 34 Year
  Sex: Male
  Weight: 79.38 kg

DRUGS (3)
  1. HEMLIBRA [Suspect]
     Active Substance: EMICIZUMAB-KXWH
     Indication: Factor VIII deficiency
     Dosage: 60 MG/ 0.4ML
     Route: 058
     Dates: start: 202012
  2. HEMLIBRA [Suspect]
     Active Substance: EMICIZUMAB-KXWH
     Dosage: 300 MG/2ML
     Route: 058
     Dates: start: 202012
  3. HEMLIBRA [Suspect]
     Active Substance: EMICIZUMAB-KXWH
     Dosage: LATEST SUSPECT DRUG ADMINISTRATION IN RELATION TO ONSET OF EVENT: 15/NOV/2024 (12PM):?HEMLIBRA EXACT
     Route: 065

REACTIONS (1)
  - Haemarthrosis [Recovered/Resolved]

NARRATIVE: CASE EVENT DATE: 20241118
